FAERS Safety Report 20375181 (Version 1)
Quarter: 2022Q1

REPORT INFORMATION
  Report Type: Spontaneous
  Country: US (occurrence: None)
  Receive Date: 20220124
  Receipt Date: 20220124
  Transmission Date: 20220423
  Serious: Yes (Other)
  Sender: FDA-Public Use
  Company Number: None

PATIENT
  Age: 68 Year
  Sex: Male
  Weight: 103.5 kg

DRUGS (8)
  1. OXYCODONE HYDROCHLORIDE [Suspect]
     Active Substance: OXYCODONE HYDROCHLORIDE
     Indication: Procedural pain
     Dosage: OTHER QUANTITY : 1 TABLET(S);?FREQUENCY : EVERY 4 HOURS;?
     Route: 048
     Dates: start: 20220114, end: 20220121
  2. ATENOLOL [Concomitant]
     Active Substance: ATENOLOL
  3. BIMATOPROST [Concomitant]
     Active Substance: BIMATOPROST
  4. HYDROCHLOROTHIAZIDE\LOSARTAN [Concomitant]
     Active Substance: HYDROCHLOROTHIAZIDE\LOSARTAN
  5. LUMIGAN [Concomitant]
     Active Substance: BIMATOPROST
  6. COMBIGAN [Concomitant]
     Active Substance: BRIMONIDINE TARTRATE\TIMOLOL MALEATE
  7. ADVIL [Concomitant]
     Active Substance: IBUPROFEN
  8. TYLENOL [Concomitant]
     Active Substance: ACETAMINOPHEN

REACTIONS (2)
  - Anxiety [None]
  - Panic attack [None]

NARRATIVE: CASE EVENT DATE: 20220121
